FAERS Safety Report 19116364 (Version 1)
Quarter: 2021Q2

REPORT INFORMATION
  Report Type: Spontaneous
  Country: CN (occurrence: CN)
  Receive Date: 20210410
  Receipt Date: 20210410
  Transmission Date: 20210717
  Serious: Yes (Other)
  Sender: FDA-Public Use
  Company Number: CN-ROCHE-2806634

PATIENT
  Age: 49 Year
  Sex: Male

DRUGS (14)
  1. MABTHERA [Suspect]
     Active Substance: RITUXIMAB
     Dosage: R2
     Route: 065
     Dates: start: 20201230
  2. PREDNISONE. [Concomitant]
     Active Substance: PREDNISONE
     Indication: B-CELL LYMPHOMA
     Dosage: R?CHOP
     Dates: start: 20200923
  3. MABTHERA [Suspect]
     Active Substance: RITUXIMAB
     Indication: B-CELL LYMPHOMA
     Dosage: R?CHOP
     Route: 065
     Dates: start: 20200923
  4. CYCLOPHOSPHAMIDE. [Concomitant]
     Active Substance: CYCLOPHOSPHAMIDE
     Dates: start: 20201104
  5. PREDNISONE. [Concomitant]
     Active Substance: PREDNISONE
     Dosage: R?CHOP
     Dates: start: 20201104
  6. EPIRUBICIN [Concomitant]
     Active Substance: EPIRUBICIN
     Indication: B-CELL LYMPHOMA
     Dosage: R?CHOP
     Dates: start: 20200923
  7. VINCRISTINE [Concomitant]
     Active Substance: VINCRISTINE
     Indication: B-CELL LYMPHOMA
     Dosage: R?CHOP
     Dates: start: 20200923
  8. LENALIDOMIDE [Concomitant]
     Active Substance: LENALIDOMIDE
     Dosage: R2
     Dates: start: 20201230
  9. MABTHERA [Suspect]
     Active Substance: RITUXIMAB
     Dosage: SECOND COURSE OF R?CHOP
     Route: 065
     Dates: start: 20201104
  10. VINCRISTINE [Concomitant]
     Active Substance: VINCRISTINE
     Dosage: R?CHOP
     Dates: start: 20201104
  11. EPIRUBICIN [Concomitant]
     Active Substance: EPIRUBICIN
     Dosage: R?CHOP
     Dates: start: 20201104
  12. MABTHERA [Suspect]
     Active Substance: RITUXIMAB
     Dosage: R2
     Route: 065
     Dates: start: 20201120
  13. CYCLOPHOSPHAMIDE. [Concomitant]
     Active Substance: CYCLOPHOSPHAMIDE
     Indication: B-CELL LYMPHOMA
     Dosage: R?CHOP
     Dates: start: 20200923
  14. LENALIDOMIDE [Concomitant]
     Active Substance: LENALIDOMIDE
     Indication: B-CELL LYMPHOMA
     Dosage: R2
     Dates: start: 20201120

REACTIONS (4)
  - Stoma site infection [Unknown]
  - Skin hypertrophy [Unknown]
  - Enterocolitis [Unknown]
  - Gastrointestinal stoma complication [Unknown]

NARRATIVE: CASE EVENT DATE: 20201128
